FAERS Safety Report 14405813 (Version 1)
Quarter: 2018Q1

REPORT INFORMATION
  Report Type: Spontaneous
  Country: DE (occurrence: DE)
  Receive Date: 20180118
  Receipt Date: 20180118
  Transmission Date: 20180509
  Serious: Yes (Other)
  Sender: FDA-Public Use
  Company Number: DE-009507513-1710DEU015318

PATIENT
  Age: 67 Year
  Sex: Female

DRUGS (6)
  1. DUOTRAV [Concomitant]
     Active Substance: TIMOLOL MALEATE\TRAVOPROST
     Dosage: STRENGTH REPORTED AS 40 UG/ML+5MG/ML
  2. ASS 100 [Concomitant]
     Active Substance: ASPIRIN
     Dosage: 100 MG, ONCE DAILY
  3. ATOZET 10 MG/40 MG [Suspect]
     Active Substance: ATORVASTATIN CALCIUM\EZETIMIBE
     Indication: HYPERCHOLESTEROLAEMIA
     Dosage: UNK
     Route: 048
     Dates: end: 20170906
  4. AMLODIPINE BESYLATE (+) CANDESARTAN CILEXETIL [Concomitant]
     Active Substance: AMLODIPINE BESYLATE\CANDESARTAN CILEXETIL
     Dosage: CAMLOSTAR 16MG/5MG ONCE DAILY
  5. ATOZET 10 MG/80 MG [Suspect]
     Active Substance: ATORVASTATIN CALCIUM\EZETIMIBE
     Indication: HYPERCHOLESTEROLAEMIA
     Dosage: UNK
     Route: 048
     Dates: start: 20170906, end: 20171006
  6. JODTHYROX [Concomitant]
     Active Substance: LEVOTHYROXINE SODIUM\POTASSIUM IODIDE
     Dosage: 100 MICROGRAM, ONCE DAILY

REACTIONS (2)
  - Transaminases increased [Recovered/Resolved]
  - Carotid artery thrombosis [Unknown]

NARRATIVE: CASE EVENT DATE: 2017
